FAERS Safety Report 6369849-2 (Version None)
Quarter: 2009Q3

REPORT INFORMATION
  Report Type: 
  Country: None (occurrence: None)
  Receive Date: 20090923
  Receipt Date: 20070523
  Transmission Date: 20100115
  Serious: Yes (Other)
  Sender: FDA-Public Use
  Company Number: US-ASTRAZENECA-2006UW12063

PATIENT
  Age: 701 Month
  Sex: Female
  Weight: 157.9 kg

DRUGS (14)
  1. SEROQUEL [Suspect]
     Indication: BIPOLAR DISORDER
     Dosage: 12.5 MG - 100 MG
     Route: 048
     Dates: start: 20000529, end: 20010901
  2. ABILIFY [Concomitant]
  3. CLOZARIL [Concomitant]
  4. HALDOL [Concomitant]
  5. NAVANE [Concomitant]
  6. RISPERDAL [Concomitant]
  7. THORAZINE [Concomitant]
  8. ZYPREXA [Concomitant]
     Dosage: 2.5 MG - 7.5 MG
     Dates: start: 20000217
  9. CELEXA [Concomitant]
     Dosage: 10 MG - 20 MG
     Dates: start: 20031129
  10. CELEXA [Concomitant]
  11. ACCUPRIL [Concomitant]
     Route: 048
     Dates: start: 20010129
  12. CELEBREX [Concomitant]
     Dosage: 10 MG - 400 MG
     Route: 048
     Dates: start: 20010129
  13. ATIVAN [Concomitant]
     Dosage: 0.5 MG - 1.5 MG
     Dates: start: 20010129
  14. KLONOPIN [Concomitant]
     Route: 048
     Dates: start: 20010129

REACTIONS (3)
  - DIABETES MELLITUS [None]
  - DIABETES MELLITUS INADEQUATE CONTROL [None]
  - TYPE 2 DIABETES MELLITUS [None]
